FAERS Safety Report 6102896-4 (Version None)
Quarter: 2009Q1

REPORT INFORMATION
  Report Type: 
  Country: None (occurrence: None)
  Receive Date: 20090303
  Receipt Date: 20090303
  Transmission Date: 20090719
  Serious: No
  Sender: FDA-Public Use
  Company Number: None

PATIENT
  Age: 38 Year
  Sex: Female
  Weight: 86.637 kg

DRUGS (2)
  1. UREA OINTMENT 50% RIVERS EDGE PHARMACEUTICALS [Suspect]
     Indication: DRY SKIN
     Dosage: EVERY DAY TOP
     Route: 061
  2. UREA OINTMENT 50% RIVERS EDGE PHARMACEUTICALS [Suspect]
     Indication: SKIN FISSURES
     Dosage: EVERY DAY TOP
     Route: 061

REACTIONS (2)
  - PRODUCT QUALITY ISSUE [None]
  - SENSORY DISTURBANCE [None]
